FAERS Safety Report 7609898-7 (Version None)
Quarter: 2011Q3

REPORT INFORMATION
  Report Type: 
  Country: None (occurrence: None)
  Receive Date: 20110714
  Receipt Date: 20110705
  Transmission Date: 20111222
  Serious: Yes (Hospitalization)
  Sender: FDA-Public Use
  Company Number: KR-ELI_LILLY_AND_COMPANY-KR201106002850

PATIENT
  Age: 37 Year
  Sex: Male

DRUGS (4)
  1. HUMALOG MIX 75/25 [Suspect]
     Indication: DIABETES MELLITUS
     Dosage: 10 U, EACH MORNING
     Route: 065
     Dates: start: 20110504
  2. HUMALOG MIX 75/25 [Suspect]
     Dosage: 10 U, EACH EVENING
  3. HUMALOG MIX 75/25 [Suspect]
     Dosage: 18 U, EACH MORNING
  4. ORAL ANTIDIABETICS [Concomitant]
     Route: 048

REACTIONS (2)
  - HYPERGLYCAEMIA [None]
  - HEADACHE [None]
